FAERS Safety Report 8765466 (Version 2)
Quarter: 2012Q4

REPORT INFORMATION
  Report Type: 
  Country: US (occurrence: US)
  Receive Date: 20120902
  Receipt Date: 20120920
  Transmission Date: 20130627
  Serious: Yes (Hospitalization, Other)
  Sender: FDA-Public Use
  Company Number: US-PFIZER INC-2012213066

PATIENT
  Age: 57 Year
  Sex: Male

DRUGS (2)
  1. CELEBREX [Suspect]
     Indication: ARTHRITIS
     Dosage: 200 mg, daily
     Route: 048
     Dates: start: 20120615, end: 20120830
  2. LIVALO [Concomitant]
     Dosage: 2 mg, daily

REACTIONS (5)
  - Cardiac failure congestive [Recovering/Resolving]
  - Oedema [Recovering/Resolving]
  - Lung disorder [Unknown]
  - Hypertension [Unknown]
  - Gait disturbance [Unknown]
